FAERS Safety Report 12405930 (Version 1)
Quarter: 2016Q2

REPORT INFORMATION
  Report Type: Report from Study
  Country: NL (occurrence: NL)
  Receive Date: 20160526
  Receipt Date: 20160526
  Transmission Date: 20160815
  Serious: Yes (Other)
  Sender: FDA-Public Use
  Company Number: NL-ROCHE-1752028

PATIENT

DRUGS (2)
  1. CAPECITABINE. [Suspect]
     Active Substance: CAPECITABINE
     Indication: COLON CANCER STAGE III
     Route: 065
  2. OXALIPLATIN. [Suspect]
     Active Substance: OXALIPLATIN
     Indication: COLON CANCER STAGE III
     Route: 065

REACTIONS (14)
  - Skin toxicity [Unknown]
  - Toxicity to various agents [Unknown]
  - Pulmonary toxicity [Unknown]
  - Nephropathy toxic [Unknown]
  - Vomiting [Unknown]
  - Nausea [Unknown]
  - Hypokalaemia [Unknown]
  - Cardiotoxicity [Unknown]
  - Reproductive toxicity [Unknown]
  - Haematotoxicity [Unknown]
  - Neurotoxicity [Unknown]
  - Diarrhoea [Unknown]
  - Thrombocytopenia [Unknown]
  - Fatigue [Unknown]
